FAERS Safety Report 11129130 (Version 6)
Quarter: 2018Q3

REPORT INFORMATION
  Report Type: Spontaneous
  Country: US (occurrence: US)
  Receive Date: 20150521
  Receipt Date: 20180810
  Transmission Date: 20181010
  Serious: Yes (Hospitalization, Other)
  Sender: FDA-Public Use
  Company Number: US-009507513-1505USA005965

PATIENT
  Sex: Female
  Weight: 73 kg

DRUGS (13)
  1. FOSAMAX [Suspect]
     Active Substance: ALENDRONATE SODIUM
     Indication: BONE LOSS
  2. FOSAMAX [Suspect]
     Active Substance: ALENDRONATE SODIUM
     Indication: MALAISE
  3. FOSAMAX PLUS D [Suspect]
     Active Substance: ALENDRONATE SODIUM\CHOLECALCIFEROL
     Indication: MALAISE
  4. FOSAMAX PLUS D [Suspect]
     Active Substance: ALENDRONATE SODIUM\CHOLECALCIFEROL
     Indication: PAIN
  5. FOSAMAX [Suspect]
     Active Substance: ALENDRONATE SODIUM
     Indication: BONE LOSS
  6. FOSAMAX [Suspect]
     Active Substance: ALENDRONATE SODIUM
     Indication: PAIN
  7. FOSAMAX PLUS D [Suspect]
     Active Substance: ALENDRONATE SODIUM\CHOLECALCIFEROL
     Indication: BONE LOSS
     Dosage: UNK
     Route: 048
     Dates: start: 200006, end: 2012
  8. FOSAMAX [Suspect]
     Active Substance: ALENDRONATE SODIUM
     Indication: OSTEOPENIA
  9. FOSAMAX [Suspect]
     Active Substance: ALENDRONATE SODIUM
     Indication: OSTEOPOROSIS
     Dosage: UNK
     Route: 048
     Dates: start: 200006, end: 2012
  10. FOSAMAX [Suspect]
     Active Substance: ALENDRONATE SODIUM
     Indication: OSTEOPENIA
  11. FOSAMAX [Suspect]
     Active Substance: ALENDRONATE SODIUM
     Indication: OSTEOPOROSIS
     Dosage: UNK
     Route: 065
     Dates: end: 2002
  12. FOSAMAX [Suspect]
     Active Substance: ALENDRONATE SODIUM
     Indication: ILL-DEFINED DISORDER
  13. FOSAMAX [Suspect]
     Active Substance: ALENDRONATE SODIUM
     Indication: PAIN

REACTIONS (45)
  - Pain [Unknown]
  - Staphylococcal infection [Unknown]
  - Knee arthroplasty [Unknown]
  - Joint injury [Unknown]
  - Pneumonia [Unknown]
  - Skin cancer [Unknown]
  - Device failure [Unknown]
  - Arthritis [Unknown]
  - Hysterectomy [Unknown]
  - Osteoarthritis [Unknown]
  - Fall [Unknown]
  - Breast cancer [Unknown]
  - Fall [Unknown]
  - Wound dehiscence [Recovering/Resolving]
  - Bladder operation [Unknown]
  - Respiratory disorder [Unknown]
  - Tibia fracture [Recovered/Resolved]
  - Femur fracture [Unknown]
  - Pain in jaw [Unknown]
  - Hypothyroidism [Unknown]
  - Sleep apnoea syndrome [Unknown]
  - Cataract [Unknown]
  - Haemorrhoid operation [Unknown]
  - Laceration [Unknown]
  - Depression [Not Recovered/Not Resolved]
  - Varicose vein operation [Unknown]
  - Back injury [Unknown]
  - Insomnia [Unknown]
  - Headache [Unknown]
  - Limb crushing injury [Unknown]
  - Drug hypersensitivity [Unknown]
  - Haematoma [Unknown]
  - Device failure [Unknown]
  - Anxiety [Not Recovered/Not Resolved]
  - Fracture nonunion [Unknown]
  - Oesophageal disorder [Unknown]
  - Oxygen saturation decreased [Unknown]
  - Femur fracture [Recovered/Resolved]
  - Low turnover osteopathy [Unknown]
  - Hypertension [Unknown]
  - Hypercholesterolaemia [Unknown]
  - Back pain [Unknown]
  - Carpal tunnel decompression [Unknown]
  - Nephrolithiasis [Unknown]
  - Hyperthyroidism [Unknown]

NARRATIVE: CASE EVENT DATE: 2004
